FAERS Safety Report 14938987 (Version 3)
Quarter: 2018Q4

REPORT INFORMATION
  Report Type: Spontaneous
  Country: JP (occurrence: JP)
  Receive Date: 20180525
  Receipt Date: 20181119
  Transmission Date: 20190204
  Serious: Yes (Other)
  Sender: FDA-Public Use
  Company Number: JP-ACTELION-A-CH2018-172495

PATIENT
  Age: 2 Year
  Sex: Female

DRUGS (7)
  1. WARFARIN [Concomitant]
     Active Substance: WARFARIN
  2. SAMSCA [Concomitant]
     Active Substance: TOLVAPTAN
  3. ALDACTONE A [Concomitant]
     Active Substance: SPIRONOLACTONE
  4. ASPIRIN. [Concomitant]
     Active Substance: ASPIRIN
  5. FUROSEMIDE. [Concomitant]
     Active Substance: FUROSEMIDE
  6. OPSUMIT [Suspect]
     Active Substance: MACITENTAN
     Indication: PULMONARY ARTERIAL HYPERTENSION
     Dosage: 1.1 MG, QD
     Route: 048
     Dates: start: 20161212
  7. ADCIRCA [Concomitant]
     Active Substance: TADALAFIL

REACTIONS (2)
  - Thrombocytopenia [Recovering/Resolving]
  - Thrombocytopenic purpura [Unknown]

NARRATIVE: CASE EVENT DATE: 20180505
